FAERS Safety Report 21023085 (Version 1)
Quarter: 2022Q2

REPORT INFORMATION
  Report Type: Spontaneous
  Country: US (occurrence: None)
  Receive Date: 20220629
  Receipt Date: 20220629
  Transmission Date: 20220721
  Serious: Yes (Hospitalization)
  Sender: FDA-Public Use
  Company Number: None

PATIENT
  Age: 70 Year
  Sex: Male

DRUGS (1)
  1. NIRMATRELVIR\RITONAVIR [Suspect]
     Active Substance: NIRMATRELVIR\RITONAVIR
     Indication: COVID-19
     Dosage: OTHER QUANTITY : 300/1001 MG;?FREQUENCY : TWICE A DAY;?
     Route: 048
     Dates: start: 20220612, end: 20220617

REACTIONS (8)
  - Dyspnoea [None]
  - Cough [None]
  - COVID-19 [None]
  - Acute respiratory failure [None]
  - Pneumonia viral [None]
  - Pneumonia [None]
  - Condition aggravated [None]
  - Wheezing [None]

NARRATIVE: CASE EVENT DATE: 20220618
